FAERS Safety Report 18099254 (Version 2)
Quarter: 2025Q3

REPORT INFORMATION
  Report Type: Spontaneous
  Country: US (occurrence: US)
  Receive Date: 20200731
  Receipt Date: 20250702
  Transmission Date: 20251021
  Serious: Yes (Life-Threatening, Hospitalization, Other)
  Sender: AUROBINDO
  Company Number: US-MYLANLABS-2020M1068654

PATIENT
  Age: 56 Year
  Sex: Male

DRUGS (9)
  1. HYDROXYCHLOROQUINE [Suspect]
     Active Substance: HYDROXYCHLOROQUINE
     Indication: COVID-19
     Dosage: 200 MILLIGRAM, TWO TIMES A DAY (200 MG, BID)
     Route: 065
  2. AZITHROMYCIN [Suspect]
     Active Substance: AZITHROMYCIN
     Indication: COVID-19
     Dosage: 250 MILLIGRAM, ONCE A DAY (250 MG, QD)
     Route: 065
  3. MYCOPHENOLATE MOFETIL [Suspect]
     Active Substance: MYCOPHENOLATE MOFETIL
     Indication: Immunosuppressant drug therapy
     Dosage: 2000 MILLIGRAM, ONCE A DAY (2000 MG, QD)
     Route: 065
  4. MYCOPHENOLATE MOFETIL [Suspect]
     Active Substance: MYCOPHENOLATE MOFETIL
     Dosage: 1000 MILLIGRAM, ONCE A DAY (1000 MG, QD)
     Route: 065
  5. MYCOPHENOLATE MOFETIL [Suspect]
     Active Substance: MYCOPHENOLATE MOFETIL
     Dosage: 500 MILLIGRAM, ONCE A DAY (500 MG, QD)
     Route: 065
  6. PREDNISONE [Suspect]
     Active Substance: PREDNISONE
     Indication: Immunosuppressant drug therapy
     Route: 065
  7. PREDNISONE [Suspect]
     Active Substance: PREDNISONE
     Dosage: 5 MILLIGRAM, ONCE A DAY (5 MG, QD)
     Route: 065
  8. TACROLIMUS [Suspect]
     Active Substance: TACROLIMUS
     Indication: Immunosuppressant drug therapy
     Route: 065
  9. TACROLIMUS [Suspect]
     Active Substance: TACROLIMUS
     Route: 065

REACTIONS (17)
  - Respiratory failure [Unknown]
  - Staphylococcal infection [Unknown]
  - Corynebacterium infection [Unknown]
  - Enterococcal infection [Unknown]
  - Pneumonia klebsiella [Unknown]
  - Morganella infection [Unknown]
  - Stenotrophomonas infection [Unknown]
  - BK virus infection [Unknown]
  - Staphylococcal bacteraemia [Unknown]
  - Pneumonia [Unknown]
  - COVID-19 [Recovered/Resolved]
  - Renal tubular necrosis [Unknown]
  - Urinoma [Unknown]
  - Malnutrition [Unknown]
  - Pulmonary oedema [Unknown]
  - Pleural effusion [Unknown]
  - Off label use [Unknown]
